FAERS Safety Report 17984115 (Version 1)
Quarter: 2020Q3

REPORT INFORMATION
  Report Type: Spontaneous
  Country: US (occurrence: US)
  Receive Date: 20200704
  Receipt Date: 20200704
  Transmission Date: 20201103
  Serious: Yes (Other)
  Sender: FDA-Public Use
  Company Number: None

PATIENT
  Age: 36 Year
  Sex: Female
  Weight: 81.65 kg

DRUGS (8)
  1. NEXPLANON [Suspect]
     Active Substance: ETONOGESTREL
     Dates: start: 20181212
  2. HUMALOG [Concomitant]
     Active Substance: INSULIN LISPRO
  3. TRULICITY [Concomitant]
     Active Substance: DULAGLUTIDE
  4. SERTRALINE [Concomitant]
     Active Substance: SERTRALINE HYDROCHLORIDE
  5. ATORVASTATIN [Concomitant]
     Active Substance: ATORVASTATIN
  6. VITAMIN D [Concomitant]
     Active Substance: VITAMIN D NOS
  7. LANTUS [Concomitant]
     Active Substance: INSULIN GLARGINE
  8. DEXCOM G6 [Concomitant]

REACTIONS (3)
  - Blood glucose increased [None]
  - Abortion spontaneous [None]
  - Pregnancy with contraceptive device [None]

NARRATIVE: CASE EVENT DATE: 20200702
